FAERS Safety Report 20213410 (Version 1)
Quarter: 2021Q4

REPORT INFORMATION
  Report Type: Spontaneous
  Country: US (occurrence: US)
  Receive Date: 20211221
  Receipt Date: 20211221
  Transmission Date: 20220303
  Serious: Yes (Other)
  Sender: FDA-Public Use
  Company Number: US-BAYER-2021A269570

PATIENT
  Age: 86 Year
  Sex: Male

DRUGS (1)
  1. XOFIGO [Suspect]
     Active Substance: RADIUM RA-223 DICHLORIDE
     Dosage: 129.4 ?CI
     Dates: start: 20210812, end: 20211118

REACTIONS (2)
  - Uveitis [None]
  - Eye irritation [None]

NARRATIVE: CASE EVENT DATE: 20211118
